FAERS Safety Report 7316580-2 (Version None)
Quarter: 2011Q1

REPORT INFORMATION
  Report Type: 
  Country: None (occurrence: None)
  Receive Date: 20110226
  Receipt Date: 20100716
  Transmission Date: 20110831
  Serious: No
  Sender: FDA-Public Use
  Company Number: US-ALLERGAN-1009255US

PATIENT

DRUGS (1)
  1. BOTOXA? [Suspect]
     Indication: MIGRAINE
     Dosage: UNK
     Route: 030

REACTIONS (1)
  - INJECTION SITE PAIN [None]
